FAERS Safety Report 5837856-1 (Version None)
Quarter: 2008Q3

REPORT INFORMATION
  Report Type: 
  Country: None (occurrence: None)
  Receive Date: 20080808
  Receipt Date: 20080213
  Transmission Date: 20090109
  Serious: No
  Sender: FDA-Public Use
  Company Number: A0709372A

PATIENT
  Age: 38 Year
  Sex: Male

DRUGS (5)
  1. PAXIL CR [Suspect]
     Indication: DEPRESSION
     Route: 048
     Dates: start: 20050101, end: 20070204
  2. ASPIRIN [Concomitant]
  3. LIPITOR [Concomitant]
  4. FISH OIL [Concomitant]
  5. VITAMIN [Concomitant]

REACTIONS (5)
  - DIZZINESS [None]
  - FORMICATION [None]
  - HEARING IMPAIRED [None]
  - PARAESTHESIA [None]
  - WITHDRAWAL SYNDROME [None]
